FAERS Safety Report 9781587 (Version 1)
Quarter: 2013Q4

REPORT INFORMATION
  Report Type: Spontaneous
  Country: US (occurrence: None)
  Receive Date: 20131223
  Receipt Date: 20131223
  Transmission Date: 20140711
  Serious: No
  Sender: FDA-Public Use
  Company Number: None

PATIENT
  Sex: Male
  Weight: 56.6 kg

DRUGS (1)
  1. DIGOXIN [Suspect]
     Dates: start: 20131212

REACTIONS (1)
  - Toxicity to various agents [None]
